FAERS Safety Report 23844371 (Version 2)
Quarter: 2024Q2

REPORT INFORMATION
  Report Type: Spontaneous
  Country: US (occurrence: US)
  Receive Date: 20240510
  Receipt Date: 20240514
  Transmission Date: 20240716
  Serious: Yes (Hospitalization, Other)
  Sender: FDA-Public Use
  Company Number: US-PURDUE PHARMA-USA-2024-0309360

PATIENT
  Age: 54 Year
  Sex: Female

DRUGS (9)
  1. OXYCODONE HYDROCHLORIDE [Interacting]
     Active Substance: OXYCODONE HYDROCHLORIDE
     Indication: Product used for unknown indication
     Dosage: 5 TABLETS OF 5 MG
     Route: 048
  2. LITHIUM [Interacting]
     Active Substance: LITHIUM
     Indication: Suicidal ideation
     Dosage: 180 TABLETS OF 450 MG
     Route: 048
  3. LITHIUM [Interacting]
     Active Substance: LITHIUM
     Dosage: 450 MILLIGRAM, BID (450 MG TWICE A DAY)
     Route: 065
  4. LITHIUM [Interacting]
     Active Substance: LITHIUM
     Dosage: 1 DOSAGE FORM, Q12H
     Route: 065
  5. ACYCLOVIR [Interacting]
     Active Substance: ACYCLOVIR
     Indication: Product used for unknown indication
     Dosage: 20 TABLETS, UNKNOWN
     Route: 048
  6. LAMOTRIGINE [Concomitant]
     Active Substance: LAMOTRIGINE
     Indication: Product used for unknown indication
     Dosage: 100 MILLIGRAM, BID (TWICE DAILY)
     Route: 065
  7. QUETIAPINE [Concomitant]
     Active Substance: QUETIAPINE
     Indication: Product used for unknown indication
     Dosage: 400 MILLIGRAM, NOCTE (400 MG AT NIGHT)
     Route: 065
  8. RISPERIDONE [Concomitant]
     Active Substance: RISPERIDONE
     Indication: Product used for unknown indication
     Dosage: 2 MILLIGRAM, DAILY
     Route: 065
  9. SERTRALINE [Concomitant]
     Active Substance: SERTRALINE HYDROCHLORIDE
     Indication: Product used for unknown indication
     Dosage: 50 MILLIGRAM, DAILY
     Route: 065

REACTIONS (11)
  - Dialysis hypotension [Recovered/Resolved]
  - Electrocardiogram QT prolonged [Recovered/Resolved]
  - Acute kidney injury [Recovered/Resolved]
  - Intentional overdose [Recovered/Resolved]
  - Toxicity to various agents [Recovered/Resolved]
  - Nausea [Recovered/Resolved]
  - Vomiting [Recovered/Resolved]
  - Confusional state [Recovered/Resolved]
  - Abdominal pain [Recovered/Resolved]
  - Dysarthria [Recovered/Resolved]
  - Drug interaction [Recovered/Resolved]
